FAERS Safety Report 7569209-2 (Version None)
Quarter: 2011Q2

REPORT INFORMATION
  Report Type: 
  Country: None (occurrence: None)
  Receive Date: 20110623
  Receipt Date: 20110613
  Transmission Date: 20111010
  Serious: Yes (Hospitalization)
  Sender: FDA-Public Use
  Company Number: PHHY2011US52520

PATIENT
  Age: 14 Year
  Sex: Female

DRUGS (1)
  1. TOBI [Suspect]
     Dosage: 300 MG, BID VIA NEBULIZER 28 DAYS ON AND 28 DAYS OFF
     Dates: start: 20100128

REACTIONS (1)
  - INFECTION [None]
